FAERS Safety Report 14870796 (Version 2)
Quarter: 2018Q2

REPORT INFORMATION
  Report Type: Spontaneous
  Country: US (occurrence: US)
  Receive Date: 20180509
  Receipt Date: 20180514
  Transmission Date: 20180711
  Serious: Yes (Hospitalization, Other)
  Sender: FDA-Public Use
  Company Number: US-SHIRE-US201816983

PATIENT

DRUGS (3)
  1. GATTEX [Suspect]
     Active Substance: TEDUGLUTIDE\WATER
     Indication: MALABSORPTION
  2. GATTEX [Suspect]
     Active Substance: TEDUGLUTIDE\WATER
     Indication: OFF LABEL USE
  3. GATTEX [Suspect]
     Active Substance: TEDUGLUTIDE\WATER
     Indication: MALNUTRITION
     Route: 065

REACTIONS (3)
  - Off label use [Unknown]
  - Fluid overload [Unknown]
  - Pneumonia [Unknown]
